FAERS Safety Report 7415201-8 (Version None)
Quarter: 2011Q2

REPORT INFORMATION
  Report Type: 
  Country: None (occurrence: None)
  Receive Date: 20110414
  Receipt Date: 20110407
  Transmission Date: 20111010
  Serious: Yes (Hospitalization)
  Sender: FDA-Public Use
  Company Number: PHHY2011DE10683

PATIENT
  Sex: Female
  Weight: 85 kg

DRUGS (9)
  1. LANTUS [Concomitant]
     Dosage: UNK
  2. METFORMIN [Concomitant]
     Dosage: 500 MG, BID
  3. NOVORAPID [Concomitant]
     Dosage: UNK
  4. CELIPRO LICH [Concomitant]
     Dosage: 1 DF, UNK
  5. PANTOZOL [Concomitant]
     Dosage: 1 DF, QD
  6. TORSEMIDE [Concomitant]
     Dosage: 1 DF, QD
  7. SIMVASTATIN [Concomitant]
     Dosage: 1 DF, QD
  8. RASILEZ [Suspect]
     Indication: HYPERTENSION
     Dosage: 300 MG, DAILY
     Dates: start: 20110125, end: 20110128
  9. ACETYLSALICYLIC ACID SRT [Concomitant]
     Dosage: 1 DF, QD 100 (UNKNOWN UNITS)

REACTIONS (4)
  - SYNCOPE [None]
  - BLOOD PRESSURE DECREASED [None]
  - CIRCULATORY COLLAPSE [None]
  - HYPERTENSION [None]
